FAERS Safety Report 9918734 (Version 1)
Quarter: 2014Q1

REPORT INFORMATION
  Report Type: Spontaneous
  Country: GB (occurrence: GB)
  Receive Date: 20140224
  Receipt Date: 20140224
  Transmission Date: 20141002
  Serious: Yes (Other)
  Sender: FDA-Public Use
  Company Number: GB-ACCORD-021943

PATIENT
  Age: 64 Year
  Sex: Male
  Weight: 83.05 kg

DRUGS (9)
  1. ALLOPURINOL/ALLOPURINOL SODIUM [Suspect]
     Indication: PRODUCT USED FOR UNKNOWN INDICATION
     Dates: start: 20131115
  2. SALBUTAMOL [Concomitant]
     Dates: start: 20131231
  3. CETIRIZINE [Concomitant]
     Dates: start: 20130902
  4. CAPSAICIN [Concomitant]
     Dates: start: 20131115, end: 20131222
  5. TIOTROPIUM/TIOTROPIUM BROMIDE [Concomitant]
     Dates: start: 20131021, end: 20131220
  6. XYLOCAINE [Concomitant]
     Dates: start: 20140123, end: 20140124
  7. PARACETAMOL [Concomitant]
     Dates: start: 20131231
  8. SIMVASTATIN [Concomitant]
     Dates: start: 20131104
  9. WARFARIN/WARFARIN POTASSIUM/WARFARIN SODIUM/WARFARIN SODIUM CLATHRATE [Concomitant]
     Dates: start: 20130919, end: 20140127

REACTIONS (1)
  - Dyspnoea [Recovered/Resolved]
